FAERS Safety Report 21331783 (Version 1)
Quarter: 2022Q3

REPORT INFORMATION
  Report Type: Spontaneous
  Country: FR (occurrence: FR)
  Receive Date: 20220914
  Receipt Date: 20220914
  Transmission Date: 20221027
  Serious: Yes (Hospitalization)
  Sender: FDA-Public Use
  Company Number: None

PATIENT
  Age: 65 Year
  Sex: Female
  Weight: 67.3 kg

DRUGS (9)
  1. OXALIPLATIN [Suspect]
     Active Substance: OXALIPLATIN
     Indication: Adenocarcinoma of colon
     Dosage: UNIT DOSE :  145 MG,   DURATION :15 DAYS, FREQUENCY TIME : 1 CYCLICAL
     Route: 065
     Dates: start: 20220630, end: 20220715
  2. HERBALS [Suspect]
     Active Substance: HERBALS
     Indication: Stress
     Dosage: UNIT DOSE : 1 DOSAGE FORM , FREQUENCY TIME : 1 DAY , DURATION : 19 DAYS
     Route: 065
     Dates: start: 20220707, end: 20220726
  3. FLUTICASONE FUROATE\VILANTEROL TRIFENATATE [Suspect]
     Active Substance: FLUTICASONE FUROATE\VILANTEROL TRIFENATATE
     Indication: Asthma
     Dosage: UNIT DOSE : 1 DOSAGE FORM , FREQUENCY TIME : 1 DAY ,   DURATION : 19 DAYS
     Route: 065
     Dates: start: 20220707, end: 20220726
  4. DESLORATADINE [Concomitant]
     Active Substance: DESLORATADINE
     Indication: Product used for unknown indication
     Dosage: UNIT DOSE : 10 MG, FREQUENCY TIME : 1 DAY
     Dates: start: 2014
  5. VALACYCLOVIR HYDROCHLORIDE [Concomitant]
     Active Substance: VALACYCLOVIR HYDROCHLORIDE
     Indication: Product used for unknown indication
     Dosage: UNIT DOSE : 500 MG, FREQUENCY TIME : 1 CYCLICAL
     Dates: start: 202112
  6. BACTRIM [Concomitant]
     Active Substance: SULFAMETHOXAZOLE\TRIMETHOPRIM
     Indication: Product used for unknown indication
     Dosage: UNIT DOSE : 1680 MG, FREQUENCY TIME : 1 WEEKS
     Dates: start: 202112
  7. TWYNSTA [Concomitant]
     Active Substance: AMLODIPINE BESYLATE\TELMISARTAN
     Indication: Product used for unknown indication
     Dosage: UNIT DOSE : 1 DOSAGE FORM , FREQUENCY TIME : 1 DAY
     Route: 065
     Dates: start: 20170202
  8. MONTELUKAST SODIUM [Concomitant]
     Active Substance: MONTELUKAST SODIUM
     Indication: Product used for unknown indication
     Dosage: UNIT DOSE :  10 MG, FREQUENCY TIME : 1 DAY
     Route: 065
     Dates: start: 2014
  9. FLUOROURACIL [Concomitant]
     Active Substance: FLUOROURACIL
     Indication: Adenocarcinoma of colon
     Dosage: UNIT DOSE :  4150 MG, FREQUENCY TIME : 1 CYCLICAL
     Route: 065
     Dates: start: 20220630

REACTIONS (2)
  - Cholestasis [Recovering/Resolving]
  - Hepatic cytolysis [Recovered/Resolved]

NARRATIVE: CASE EVENT DATE: 20220715
